FAERS Safety Report 19140251 (Version 1)
Quarter: 2021Q2

REPORT INFORMATION
  Report Type: Spontaneous
  Country: CN (occurrence: CN)
  Receive Date: 20210415
  Receipt Date: 20210415
  Transmission Date: 20210717
  Serious: No
  Sender: FDA-Public Use
  Company Number: CN-ASTRAZENECA-2021A229209

PATIENT
  Age: 39 Year
  Sex: Male
  Weight: 82 kg

DRUGS (1)
  1. FORXIGA [Suspect]
     Active Substance: DAPAGLIFLOZIN
     Indication: DIABETES MELLITUS
     Route: 048
     Dates: start: 20201111, end: 20201117

REACTIONS (1)
  - Ketosis [Recovering/Resolving]

NARRATIVE: CASE EVENT DATE: 20201117
